FAERS Safety Report 23509566 (Version 1)
Quarter: 2024Q1

REPORT INFORMATION
  Report Type: Spontaneous
  Country: ES (occurrence: ES)
  Receive Date: 20240210
  Receipt Date: 20240210
  Transmission Date: 20240410
  Serious: Yes (Other)
  Sender: FDA-Public Use
  Company Number: None

PATIENT
  Age: 60 Year
  Sex: Male

DRUGS (1)
  1. OZURDEX [Suspect]
     Active Substance: DEXAMETHASONE
     Indication: Product used for unknown indication
     Dosage: TIME INTERVAL: AS NECESSARY: 700 MICROGRAMS,1 IMPLANT, FREQUENCY: EVERY 2 MONTHS
     Route: 050
     Dates: start: 20231108, end: 20240108

REACTIONS (2)
  - Wrong schedule [Recovered/Resolved]
  - Ocular hypertension [Unknown]

NARRATIVE: CASE EVENT DATE: 20231108
